FAERS Safety Report 5418027-X (Version None)
Quarter: 2007Q3

REPORT INFORMATION
  Report Type: 
  Country: None (occurrence: None)
  Receive Date: 20070817
  Receipt Date: 20070220
  Transmission Date: 20080115
  Serious: No
  Sender: FDA-Public Use
  Company Number: A0636868A

PATIENT
  Age: 48 Year
  Sex: Female
  Weight: 60.5 kg

DRUGS (15)
  1. BEXXAR [Suspect]
     Indication: NON-HODGKIN'S LYMPHOMA
     Dosage: 5.34 PER DAY
     Route: 042
     Dates: start: 20061103, end: 20061103
  2. BEXXAR [Suspect]
     Indication: NON-HODGKIN'S LYMPHOMA
     Dosage: 75.7 PER DAY
     Route: 042
     Dates: start: 20061116, end: 20061116
  3. CIMETIDINE HCL [Suspect]
     Indication: PRURITUS
     Route: 048
     Dates: start: 20061101, end: 20061101
  4. DICYCLOMINE [Concomitant]
  5. REGLAN [Concomitant]
  6. PHENERGAN HCL [Concomitant]
  7. TOPROL-XL [Concomitant]
  8. VICODIN [Concomitant]
  9. NASONEX [Concomitant]
  10. ZYRTEC [Concomitant]
  11. IRON [Concomitant]
  12. TRAMADOL HCL [Concomitant]
  13. KYTRIL [Concomitant]
  14. COMPAZINE [Concomitant]
  15. PROTONIX [Concomitant]

REACTIONS (5)
  - ACARODERMATITIS [None]
  - DRUG INEFFECTIVE [None]
  - PHARMACEUTICAL PRODUCT COMPLAINT [None]
  - PRURITUS [None]
  - RASH [None]
